FAERS Safety Report 9442947 (Version 1)
Quarter: 2013Q3

REPORT INFORMATION
  Report Type: Report from Study
  Country: GB (occurrence: GB)
  Receive Date: 20130806
  Receipt Date: 20130806
  Transmission Date: 20140515
  Serious: Yes (Death)
  Sender: FDA-Public Use
  Company Number: GB-ABBOTT-13P-167-1128929-00

PATIENT
  Sex: Female

DRUGS (1)
  1. HUMIRA [Suspect]
     Indication: RHEUMATOID ARTHRITIS
     Route: 058
     Dates: start: 20070221

REACTIONS (6)
  - Multi-organ failure [Fatal]
  - Biliary sepsis [Fatal]
  - Cholelithiasis [Fatal]
  - Liver abscess [Fatal]
  - Rheumatoid arthritis [Fatal]
  - Hypertension [Fatal]
